FAERS Safety Report 12077070 (Version 2)
Quarter: 2016Q1

REPORT INFORMATION
  Report Type: Report from Study
  Country: CA (occurrence: CA)
  Receive Date: 20160215
  Receipt Date: 20160309
  Transmission Date: 20160526
  Serious: Yes (Hospitalization)
  Sender: FDA-Public Use
  Company Number: PHHY2016CA018973

PATIENT
  Age: 53 Year
  Sex: Female

DRUGS (1)
  1. SANDOSTATIN LAR DEPOT [Suspect]
     Active Substance: OCTREOTIDE ACETATE
     Indication: PSEUDOMYXOMA PERITONEI
     Dosage: 20 MG, QMO (EVERY 4 WEEKS)
     Route: 030
     Dates: start: 20150909

REACTIONS (2)
  - General symptom [Unknown]
  - Product use issue [Unknown]

NARRATIVE: CASE EVENT DATE: 20150909
